FAERS Safety Report 8228722-5 (Version None)
Quarter: 2012Q1

REPORT INFORMATION
  Report Type: 
  Country: None (occurrence: None)
  Receive Date: 20120322
  Receipt Date: 20120317
  Transmission Date: 20120608
  Serious: Yes (Hospitalization)
  Sender: FDA-Public Use
  Company Number: US-INCYTE CORPORATION-2012IN000325

PATIENT
  Sex: Female

DRUGS (1)
  1. JAKAFI [Suspect]
     Indication: MYELOFIBROSIS
     Dosage: 20 MG, BID
     Route: 048
     Dates: start: 20111224, end: 20120124

REACTIONS (4)
  - HAEMOGLOBIN DECREASED [None]
  - LUNG INFILTRATION [None]
  - DRUG HYPERSENSITIVITY [None]
  - DYSPNOEA [None]
